FAERS Safety Report 23538699 (Version 1)
Quarter: 2024Q1

REPORT INFORMATION
  Report Type: Spontaneous
  Country: US (occurrence: US)
  Receive Date: 20240219
  Receipt Date: 20240219
  Transmission Date: 20240410
  Serious: No
  Sender: FDA-Public Use
  Company Number: US-SANDOZ-SDZ2024US015944

PATIENT
  Sex: Male

DRUGS (1)
  1. LATANOPROST [Suspect]
     Active Substance: LATANOPROST
     Indication: Product used for unknown indication
     Dosage: 2.5 ML, 1 DROP, QD, IN EACH EYE
     Route: 065
     Dates: start: 20230801

REACTIONS (3)
  - Foreign body in eye [Unknown]
  - Ocular discomfort [Unknown]
  - Product quality issue [Unknown]
